FAERS Safety Report 16781118 (Version 1)
Quarter: 2019Q3

REPORT INFORMATION
  Report Type: Spontaneous
  Country: US (occurrence: US)
  Receive Date: 20190717
  Receipt Date: 20190717
  Transmission Date: 20191005
  Serious: No
  Sender: FDA-Public Use
  Company Number: None

PATIENT
  Age: 58 Year
  Sex: Female

DRUGS (4)
  1. VITAMIN D [Concomitant]
     Active Substance: VITAMIN D NOS
  2. ZINC. [Concomitant]
     Active Substance: ZINC
  3. MAGNESIUIM [Concomitant]
  4. AFINITOR [Suspect]
     Active Substance: EVEROLIMUS
     Dosage: 19-JUL-2019

REACTIONS (1)
  - Disease progression [None]

NARRATIVE: CASE EVENT DATE: 20190717
